FAERS Safety Report 26188094 (Version 1)
Quarter: 2025Q4

REPORT INFORMATION
  Report Type: Spontaneous
  Country: EU (occurrence: EU)
  Receive Date: 20251222
  Receipt Date: 20251222
  Transmission Date: 20260117
  Serious: Yes (Hospitalization, Other)
  Sender: MYLAN
  Company Number: EU-SANDOZ-SDZ2025DE092800

PATIENT
  Sex: Female

DRUGS (12)
  1. CELECOXIB [Suspect]
     Active Substance: CELECOXIB
     Indication: Product used for unknown indication
     Dosage: 100 MILLIGRAM
  2. CELECOXIB [Suspect]
     Active Substance: CELECOXIB
     Dosage: 100 MILLIGRAM
     Route: 065
  3. CELECOXIB [Suspect]
     Active Substance: CELECOXIB
     Dosage: 100 MILLIGRAM
     Route: 065
  4. CELECOXIB [Suspect]
     Active Substance: CELECOXIB
     Dosage: 100 MILLIGRAM
  5. BIMZELX [Suspect]
     Active Substance: BIMEKIZUMAB-BKZX
     Indication: Product used for unknown indication
     Dosage: 160 MILLIGRAM
     Dates: start: 20240531, end: 20240531
  6. BIMZELX [Suspect]
     Active Substance: BIMEKIZUMAB-BKZX
     Dosage: 160 MILLIGRAM
     Route: 065
     Dates: start: 20240531, end: 20240531
  7. BIMZELX [Suspect]
     Active Substance: BIMEKIZUMAB-BKZX
     Dosage: 160 MILLIGRAM
     Route: 065
     Dates: start: 20240531, end: 20240531
  8. BIMZELX [Suspect]
     Active Substance: BIMEKIZUMAB-BKZX
     Dosage: 160 MILLIGRAM
     Dates: start: 20240531, end: 20240531
  9. TREMFYA [Suspect]
     Active Substance: GUSELKUMAB
     Indication: Product used for unknown indication
     Dosage: 100 MILLIGRAM
  10. TREMFYA [Suspect]
     Active Substance: GUSELKUMAB
     Dosage: 100 MILLIGRAM
     Route: 065
  11. TREMFYA [Suspect]
     Active Substance: GUSELKUMAB
     Dosage: 100 MILLIGRAM
     Route: 065
  12. TREMFYA [Suspect]
     Active Substance: GUSELKUMAB
     Dosage: 100 MILLIGRAM

REACTIONS (1)
  - Cholecystitis acute [Unknown]
